FAERS Safety Report 13917681 (Version 1)
Quarter: 2017Q3

REPORT INFORMATION
  Report Type: Report from Study
  Country: PH (occurrence: PH)
  Receive Date: 20170829
  Receipt Date: 20170829
  Transmission Date: 20171127
  Serious: Yes (Death)
  Sender: FDA-Public Use
  Company Number: PH-SEATTLE GENETICS-2017SGN02025

PATIENT
  Age: 25 Year
  Sex: Male

DRUGS (1)
  1. BRENTUXIMAB VEDOTIN [Suspect]
     Active Substance: BRENTUXIMAB VEDOTIN
     Indication: HODGKIN^S DISEASE
     Dosage: 50 MG, Q21D
     Route: 042
     Dates: start: 20170613, end: 20170824

REACTIONS (1)
  - Death [Fatal]

NARRATIVE: CASE EVENT DATE: 20170824
